FAERS Safety Report 18760447 (Version 1)
Quarter: 2021Q1

REPORT INFORMATION
  Report Type: Spontaneous
  Country: US (occurrence: US)
  Receive Date: 20210120
  Receipt Date: 20210120
  Transmission Date: 20210419
  Serious: Yes (Hospitalization, Other)
  Sender: FDA-Public Use
  Company Number: US-AUROBINDO-AUR-APL-2019-105946

PATIENT
  Age: 20 Year
  Sex: Male
  Weight: 77.56 kg

DRUGS (2)
  1. CLOZAPINE 100 MG TABLET USP [Suspect]
     Active Substance: CLOZAPINE
     Indication: PSYCHOTIC DISORDER
     Dosage: 300 MILLIGRAM, IN TOTAL
     Route: 048
     Dates: start: 20190422
  2. CLOZAPINE TABLET USP 25 MG [Suspect]
     Active Substance: CLOZAPINE
     Indication: PSYCHOTIC DISORDER
     Dosage: 50 MILLIGRAM, IN TOTAL
     Route: 048
     Dates: start: 20190422

REACTIONS (1)
  - Neutropenia [Recovered/Resolved]

NARRATIVE: CASE EVENT DATE: 20191211
